FAERS Safety Report 12271165 (Version 2)
Quarter: 2016Q2

REPORT INFORMATION
  Report Type: Spontaneous
  Country: US (occurrence: US)
  Receive Date: 20160415
  Receipt Date: 20160428
  Transmission Date: 20160815
  Serious: Yes (Hospitalization, Other)
  Sender: FDA-Public Use
  Company Number: US-GLAXOSMITHKLINE-US2016047565

PATIENT
  Age: 85 Year
  Sex: Female

DRUGS (5)
  1. PREDNISONE. [Concomitant]
     Active Substance: PREDNISONE
  2. SYMBICORT [Concomitant]
     Active Substance: BUDESONIDE\FORMOTEROL FUMARATE DIHYDRATE
  3. TRAMADOL. [Concomitant]
     Active Substance: TRAMADOL
  4. VENTOLIN HFA [Suspect]
     Active Substance: ALBUTEROL SULFATE
     Indication: ILL-DEFINED DISORDER
     Dosage: 2 PUFF(S), PRN
     Route: 055
     Dates: start: 2010
  5. GABAPENTIN. [Concomitant]
     Active Substance: GABAPENTIN

REACTIONS (10)
  - Nervous system disorder [Recovering/Resolving]
  - Back pain [Recovering/Resolving]
  - Pneumonia [Unknown]
  - Compression fracture [Recovering/Resolving]
  - Sputum increased [Recovered/Resolved]
  - Spinal operation [Recovering/Resolving]
  - Condition aggravated [Unknown]
  - Device use error [Unknown]
  - Spinal column stenosis [Unknown]
  - Impaired healing [Unknown]

NARRATIVE: CASE EVENT DATE: 2011
